FAERS Safety Report 9206947 (Version 3)
Quarter: 2013Q2

REPORT INFORMATION
  Report Type: Spontaneous
  Country: JP (occurrence: JP)
  Receive Date: 20130403
  Receipt Date: 20130416
  Transmission Date: 20140414
  Serious: Yes (Hospitalization, Other)
  Sender: FDA-Public Use
  Company Number: JP-PFIZER INC-2013106028

PATIENT
  Age: 41 Year
  Sex: Male
  Weight: 116.5 kg

DRUGS (1)
  1. LYRICA [Suspect]
     Dosage: 300 MG DAILY
     Route: 048

REACTIONS (2)
  - Liver disorder [Recovering/Resolving]
  - Biliary tract disorder [Unknown]
